FAERS Safety Report 5699856-4 (Version None)
Quarter: 2008Q2

REPORT INFORMATION
  Report Type: 
  Country: None (occurrence: None)
  Receive Date: 20080410
  Receipt Date: 20080220
  Transmission Date: 20081010
  Serious: Yes (Other)
  Sender: FDA-Public Use
  Company Number: GR-BOEHRINGER INGELHEIM GMBH, GERMANY-2008-DE-01402VA

PATIENT
  Age: 33 Year
  Sex: Male

DRUGS (6)
  1. LOXITAN [Suspect]
     Indication: PYREXIA
     Route: 048
     Dates: start: 20080206, end: 20080206
  2. ZITHROMAX [Suspect]
     Indication: PYREXIA
     Route: 048
     Dates: start: 20080206, end: 20080206
  3. CIPROXIN [Concomitant]
     Route: 048
     Dates: start: 20080208, end: 20080209
  4. DEPON [Concomitant]
     Route: 048
     Dates: start: 20080208, end: 20080209
  5. LYRICA [Concomitant]
     Route: 048
  6. ZOLOFT [Concomitant]
     Route: 048

REACTIONS (2)
  - DRUG ERUPTION [None]
  - SKIN LESION [None]
